FAERS Safety Report 9739341 (Version 1)
Quarter: 2013Q4

REPORT INFORMATION
  Report Type: Spontaneous
  Country: US (occurrence: US)
  Receive Date: 20131209
  Receipt Date: 20131209
  Transmission Date: 20140711
  Serious: No
  Sender: FDA-Public Use
  Company Number: US-GLAXOSMITHKLINE-A1036901A

PATIENT
  Age: 70 Year
  Sex: Female

DRUGS (1)
  1. HYCAMTIN [Suspect]
     Indication: PRODUCT USED FOR UNKNOWN INDICATION
     Dosage: 1MG SEE DOSAGE TEXT
     Route: 048

REACTIONS (3)
  - Depression [Unknown]
  - Alopecia [Unknown]
  - Hypertrichosis [Unknown]
